FAERS Safety Report 14376447 (Version 1)
Quarter: 2018Q1

REPORT INFORMATION
  Report Type: Spontaneous
  Country: US (occurrence: US)
  Receive Date: 20180110
  Receipt Date: 20180110
  Transmission Date: 20180509
  Serious: Yes (Hospitalization)
  Sender: FDA-Public Use
  Company Number: None

PATIENT
  Age: 60 Year
  Sex: Male
  Weight: 84.1 kg

DRUGS (13)
  1. FLUTICASONE. [Concomitant]
     Active Substance: FLUTICASONE
  2. SPIRONOLACTONE. [Concomitant]
     Active Substance: SPIRONOLACTONE
  3. TRAMADOL. [Concomitant]
     Active Substance: TRAMADOL
  4. LACTULOSE. [Concomitant]
     Active Substance: LACTULOSE
  5. ONDANSETRON [Concomitant]
     Active Substance: ONDANSETRON
  6. HARVONI [Suspect]
     Active Substance: LEDIPASVIR\SOFOSBUVIR
     Indication: HEPATITIS C
     Dosage: DOSE - 90/400MG
     Route: 048
     Dates: start: 20170318, end: 20170902
  7. FOLIC ACID. [Concomitant]
     Active Substance: FOLIC ACID
  8. FUROSEMIDE. [Concomitant]
     Active Substance: FUROSEMIDE
  9. LORATADINE. [Concomitant]
     Active Substance: LORATADINE
  10. RIFAXIMIN. [Concomitant]
     Active Substance: RIFAXIMIN
  11. PREDNISONE. [Concomitant]
     Active Substance: PREDNISONE
  12. MAGNESIUM OXIDE. [Concomitant]
     Active Substance: MAGNESIUM OXIDE
  13. NADOLOL. [Concomitant]
     Active Substance: NADOLOL

REACTIONS (10)
  - Laboratory test interference [None]
  - Hepatic encephalopathy [None]
  - Hypotension [None]
  - Cortisol decreased [None]
  - Aspiration [None]
  - Staphylococcus test positive [None]
  - Fluid overload [None]
  - Lethargy [None]
  - Mental status changes [None]
  - Dysphagia [None]

NARRATIVE: CASE EVENT DATE: 20170806
